FAERS Safety Report 5951972-5 (Version None)
Quarter: 2008Q4

REPORT INFORMATION
  Report Type: 
  Country: None (occurrence: None)
  Receive Date: 20081113
  Receipt Date: 20071008
  Transmission Date: 20090506
  Serious: No
  Sender: FDA-Public Use
  Company Number: A0686959A

PATIENT
  Age: 45 Year
  Sex: Female

DRUGS (1)
  1. CARVEDILOL [Suspect]
     Indication: CARDIOMYOPATHY
     Dosage: 12.5MG TWICE PER DAY
     Route: 065

REACTIONS (1)
  - DERMATITIS EXFOLIATIVE [None]
